FAERS Safety Report 9157705 (Version 1)
Quarter: 2013Q1

REPORT INFORMATION
  Report Type: Spontaneous
  Country: ES (occurrence: None)
  Receive Date: 20130212
  Receipt Date: 20130212
  Transmission Date: 20140127
  Serious: Yes (Hospitalization)
  Sender: FDA-Public Use
  Company Number: 2013000017

PATIENT
  Age: 62 Year
  Sex: Female

DRUGS (5)
  1. ACEON [Suspect]
     Indication: HYPERTENSION
     Dosage: UNK, ORAL
     Route: 048
     Dates: end: 20110310
  2. ENALAPRIL [Suspect]
     Dosage: 5 MG, QD, ORAL
     Route: 048
     Dates: start: 20100311, end: 20110419
  3. IBUPROFEN (IBUPROFEN) [Suspect]
     Dosage: 1.8 G, QD, ORAL
     Route: 048
     Dates: start: 20100316
  4. AMBROXOL (AMBROXOL) [Concomitant]
  5. EBASTINE (EBASTINE) [Concomitant]

REACTIONS (2)
  - Pneumonia pneumococcal [None]
  - Renal failure acute [None]
